FAERS Safety Report 8327448-7 (Version None)
Quarter: 2012Q2

REPORT INFORMATION
  Report Type: 
  Country: None (occurrence: None)
  Receive Date: 20120502
  Receipt Date: 20120428
  Transmission Date: 20120825
  Serious: Yes (Hospitalization)
  Sender: FDA-Public Use
  Company Number: JP-ACCORD-013331

PATIENT
  Age: 61 Year
  Sex: Male

DRUGS (3)
  1. BEVACIZUMAB [Suspect]
     Indication: LUNG ADENOCARCINOMA STAGE IV
  2. PACLITAXEL [Suspect]
     Indication: LUNG ADENOCARCINOMA STAGE IV
  3. CARBOPLATIN [Suspect]
     Indication: LUNG ADENOCARCINOMA STAGE IV
     Dosage: 350 MG/BODY; AREA UNDER THE CURVE = 5

REACTIONS (3)
  - OFF LABEL USE [None]
  - ICHTHYOSIS ACQUIRED [None]
  - TUMOUR LYSIS SYNDROME [None]
